FAERS Safety Report 6057543-7 (Version None)
Quarter: 2009Q1

REPORT INFORMATION
  Report Type: 
  Country: None (occurrence: None)
  Receive Date: 20090127
  Receipt Date: 20090127
  Transmission Date: 20090719
  Serious: No
  Sender: FDA-Public Use
  Company Number: None

PATIENT
  Age: 67 Year
  Sex: Male
  Weight: 77.1115 kg

DRUGS (2)
  1. PROSCAR [Suspect]
     Indication: BENIGN PROSTATIC HYPERPLASIA
     Dosage: 5MG 1 DAILY PO
     Route: 048
     Dates: start: 20040701, end: 20080314
  2. FINASTERIDE [Suspect]
     Indication: BENIGN PROSTATIC HYPERPLASIA
     Dosage: 5MG 1 DAILY PO
     Route: 048
     Dates: start: 20080314, end: 20080324

REACTIONS (2)
  - PEYRONIE'S DISEASE [None]
  - PRODUCT QUALITY ISSUE [None]
